FAERS Safety Report 21177654 (Version 9)
Quarter: 2024Q2

REPORT INFORMATION
  Report Type: Report from Study
  Country: JP (occurrence: JP)
  Receive Date: 20220805
  Receipt Date: 20240530
  Transmission Date: 20240715
  Serious: Yes (Other)
  Sender: FDA-Public Use
  Company Number: JP-ASTELLAS-2022JP004022

PATIENT
  Age: 78 Year
  Sex: Male
  Weight: 51 kg

DRUGS (5)
  1. ENFORTUMAB VEDOTIN-EJFV [Suspect]
     Active Substance: ENFORTUMAB VEDOTIN-EJFV
     Indication: Transitional cell carcinoma
     Route: 041
     Dates: start: 20220210, end: 20220224
  2. ENFORTUMAB VEDOTIN-EJFV [Suspect]
     Active Substance: ENFORTUMAB VEDOTIN-EJFV
     Dosage: 1.00 MG/KG(80MG),ONCE-WEEKLY DOSING WAS CONTINUED FOR 3 CONSECUTIVE WEEKS, WEEK 4 WAS INTERRUPTED
     Route: 041
     Dates: start: 20220317, end: 20220428
  3. ENFORTUMAB VEDOTIN-EJFV [Suspect]
     Active Substance: ENFORTUMAB VEDOTIN-EJFV
     Dosage: 0.85 MG/KG, UNKNOWN FREQ.
     Route: 041
     Dates: start: 20220527, end: 20220902
  4. PREDONINE [Concomitant]
     Active Substance: PREDNISOLONE
     Indication: Skin disorder
     Dosage: UNK UNK, UNKNOWN FREQ.
     Route: 065
  5. Rinderon [Concomitant]
     Indication: Skin disorder
     Dosage: UNK UNK, TWICE DAILY
     Route: 061
     Dates: start: 20220303, end: 20220324

REACTIONS (3)
  - Skin disorder [Recovered/Resolved]
  - Neutrophil count decreased [Recovered/Resolved]
  - Pyrexia [Recovered/Resolved]

NARRATIVE: CASE EVENT DATE: 20220303
